FAERS Safety Report 9096747 (Version 1)
Quarter: 2013Q1

REPORT INFORMATION
  Report Type: Spontaneous
  Country: JP (occurrence: JP)
  Receive Date: 20130211
  Receipt Date: 20130211
  Transmission Date: 20140127
  Serious: Yes (Hospitalization)
  Sender: FDA-Public Use
  Company Number: PHHY2013JP011605

PATIENT
  Age: 68 Year
  Sex: Male
  Weight: 85 kg

DRUGS (10)
  1. ZOMETA [Suspect]
     Indication: METASTASES TO BONE
     Dosage: 4 MG
     Route: 041
     Dates: start: 20111125, end: 20111125
  2. ZOMETA [Suspect]
     Dosage: 4 MG
     Route: 041
     Dates: start: 20111220, end: 20111220
  3. ZOMETA [Suspect]
     Dosage: 4 MG
     Route: 041
     Dates: start: 20120113, end: 20120113
  4. ZOMETA [Suspect]
     Dosage: 4 MG
     Route: 041
     Dates: start: 20120203, end: 20120203
  5. ZOMETA [Suspect]
     Dosage: 4 MG
     Route: 041
     Dates: start: 20120224, end: 20120224
  6. ZOMETA [Suspect]
     Dosage: 4 MG
     Route: 041
     Dates: start: 20120316, end: 20120316
  7. ZOMETA [Suspect]
     Dosage: 4 MG
     Route: 041
     Dates: start: 20120427, end: 20120427
  8. ZOMETA [Suspect]
     Dosage: 4 MG
     Route: 041
     Dates: start: 20120518, end: 20120518
  9. ZOMETA [Suspect]
     Dosage: 4 MG
     Route: 041
     Dates: start: 20120608, end: 20120608
  10. ZOMETA [Suspect]
     Dosage: 4 MG
     Route: 041
     Dates: start: 20120629, end: 20120629

REACTIONS (2)
  - Osteonecrosis of jaw [Recovering/Resolving]
  - Trismus [Unknown]
